FAERS Safety Report 22528076 (Version 1)
Quarter: 2023Q2

REPORT INFORMATION
  Report Type: Spontaneous
  Country: CN (occurrence: CN)
  Receive Date: 20230607
  Receipt Date: 20230607
  Transmission Date: 20230721
  Serious: Yes (Death, Life-Threatening, Hospitalization, Other)
  Sender: FDA-Public Use
  Company Number: CN-STERISCIENCE B.V.-2023-ST-001420

PATIENT
  Age: 75 Year
  Sex: Male

DRUGS (10)
  1. PIPERACILLIN SODIUM\TAZOBACTAM SODIUM [Suspect]
     Active Substance: PIPERACILLIN SODIUM\TAZOBACTAM SODIUM
     Indication: Listeriosis
     Dosage: 4.5 GRAM, Q8H
     Route: 042
     Dates: start: 2020
  2. PIPERACILLIN SODIUM\TAZOBACTAM SODIUM [Suspect]
     Active Substance: PIPERACILLIN SODIUM\TAZOBACTAM SODIUM
     Indication: Encephalitis
  3. VANCOMYCIN [Suspect]
     Active Substance: VANCOMYCIN
     Indication: Pneumococcal infection
     Dosage: 500000 INTERNATIONAL UNIT, Q6H, INJECTION, INFUSION
     Route: 042
     Dates: start: 2020
  4. VANCOMYCIN [Suspect]
     Active Substance: VANCOMYCIN
     Dosage: 1 MILLION INTERNATIONAL UNIT, BID, 12 HOURS, INJECTION, INFUSION
     Route: 042
     Dates: start: 2020
  5. MEROPENEM [Suspect]
     Active Substance: MEROPENEM
     Indication: Listeriosis
     Dosage: 1 GRAM, Q8H, INJECTION
     Route: 065
     Dates: start: 2020
  6. MEROPENEM [Suspect]
     Active Substance: MEROPENEM
     Indication: Encephalitis
  7. METHYLPREDNISOLONE [Suspect]
     Active Substance: METHYLPREDNISOLONE
     Indication: Listeriosis
     Dosage: 40 MILLIGRAM
     Route: 065
     Dates: start: 2020
  8. METHYLPREDNISOLONE [Suspect]
     Active Substance: METHYLPREDNISOLONE
     Indication: Encephalitis
     Dosage: 20 MILLIGRAM
     Route: 065
     Dates: start: 2020
  9. NOREPINEPHRINE [Suspect]
     Active Substance: NOREPINEPHRINE
     Indication: Hypertension
     Dosage: 500000 INTERNATIONAL UNIT, Q6H
     Route: 042
     Dates: start: 2020
  10. LEVOFLOXACIN [Concomitant]
     Active Substance: LEVOFLOXACIN
     Indication: Evidence based treatment
     Dosage: 0.5 GRAM, QD, INFUSION
     Route: 042
     Dates: start: 2020

REACTIONS (1)
  - Treatment failure [Fatal]

NARRATIVE: CASE EVENT DATE: 20200101
